FAERS Safety Report 7440002-4 (Version None)
Quarter: 2011Q2

REPORT INFORMATION
  Report Type: 
  Country: None (occurrence: None)
  Receive Date: 20110427
  Receipt Date: 20110418
  Transmission Date: 20111010
  Serious: Yes (Other)
  Sender: FDA-Public Use
  Company Number: PHHY2011DE03785

PATIENT
  Sex: Female

DRUGS (5)
  1. DIOVAN [Suspect]
     Dosage: 1.5 DF, QD
     Dates: start: 20110114, end: 20110201
  2. DIOVAN [Suspect]
     Indication: HYPERTENSION
     Dosage: 0.5 DF, QD
     Dates: end: 20100101
  3. DIOVAN [Suspect]
     Dosage: 0.5 DF, BID
     Dates: start: 20110201
  4. PANTOPRAZOLE [Concomitant]
     Dosage: UNK
  5. DIOVAN [Suspect]
     Dosage: 1 DF, QD
     Dates: start: 20100101, end: 20110113

REACTIONS (8)
  - HERNIA [None]
  - BLOOD PRESSURE INCREASED [None]
  - BLOOD PRESSURE FLUCTUATION [None]
  - HEART RATE INCREASED [None]
  - MALAISE [None]
  - DIZZINESS [None]
  - HEADACHE [None]
  - DIAPHRAGMATIC RUPTURE [None]
